FAERS Safety Report 4748246-7 (Version None)
Quarter: 2005Q3

REPORT INFORMATION
  Report Type: 
  Country: None (occurrence: None)
  Receive Date: 20050815
  Receipt Date: 20050527
  Transmission Date: 20060218
  Serious: No
  Sender: FDA-Public Use
  Company Number: USA050599190

PATIENT
  Age: 70 Year
  Sex: Male

DRUGS (9)
  1. CIALIS [Suspect]
     Dosage: 10 MG DAY
  2. DILTIAZEM [Concomitant]
  3. WARFARIN SODIUM [Concomitant]
  4. DETROL [Concomitant]
  5. ZOCOR [Concomitant]
  6. ZANTAC [Concomitant]
  7. BENADRYL/00000402/(DIPHENHYDRAMINE) HYDROCHLORIDE [Concomitant]
  8. VITAMIN E [Concomitant]
  9. GLUCOSAMINE SULFATE [Concomitant]

REACTIONS (1)
  - HEADACHE [None]
